FAERS Safety Report 5225583-3 (Version None)
Quarter: 2007Q1

REPORT INFORMATION
  Report Type: 
  Country: None (occurrence: None)
  Receive Date: 20061201
  Receipt Date: 20060803
  Transmission Date: 20070707
  Serious: Yes (Life-Threatening)
  Sender: FDA-Public Use
  Company Number: US200608000918

PATIENT
  Age: 61 Year
  Sex: Male

DRUGS (4)
  1. CYMBALTA [Suspect]
     Indication: NEUROPATHY
     Dosage: 60 MG, 2/D
     Dates: start: 20050701
  2. PREGABALIN (PREGABALIN) [Concomitant]
  3. FENOFIBRATE [Concomitant]
  4. ALLOPURINOL [Concomitant]

REACTIONS (1)
  - THROMBOCYTOPENIA [None]
